FAERS Safety Report 4894758-5 (Version None)
Quarter: 2006Q1

REPORT INFORMATION
  Report Type: 
  Country: None (occurrence: None)
  Receive Date: 20060126
  Receipt Date: 20060126
  Transmission Date: 20060701
  Serious: Yes (Other)
  Sender: FDA-Public Use
  Company Number: None

PATIENT
  Age: 35 Year
  Sex: Female
  Weight: 49.8957 kg

DRUGS (4)
  1. MEPERIDINE    75MG/ML     HOSPIRA [Suspect]
     Indication: ABDOMINAL PAIN
     Dosage: 75MG   Q2-3H   IM
     Route: 030
     Dates: start: 20051129, end: 20051129
  2. MEPERIDINE    75MG/ML     HOSPIRA [Suspect]
     Indication: PROCEDURAL PAIN
     Dosage: 75MG   Q2-3H   IM
     Route: 030
     Dates: start: 20051129, end: 20051129
  3. PROMETHAZINE [Suspect]
     Indication: ABDOMINAL PAIN
     Dosage: 25 MG      Q2-3H     IM
     Route: 030
     Dates: start: 20051129, end: 20051129
  4. PROMETHAZINE [Suspect]
     Indication: PROCEDURAL PAIN
     Dosage: 25 MG      Q2-3H     IM
     Route: 030
     Dates: start: 20051129, end: 20051129

REACTIONS (5)
  - DRUG ADMINISTRATION ERROR [None]
  - INJECTION SITE PAIN [None]
  - MUSCLE DISORDER [None]
  - PARALYSIS [None]
  - WRONG TECHNIQUE IN DRUG USAGE PROCESS [None]
